FAERS Safety Report 13213646 (Version 1)
Quarter: 2017Q1

REPORT INFORMATION
  Report Type: Other
  Country: FR (occurrence: FR)
  Receive Date: 20170210
  Receipt Date: 20170210
  Transmission Date: 20170428
  Serious: Yes (Hospitalization)
  Sender: FDA-Public Use
  Company Number: FR-VERTEX PHARMACEUTICALS-2017-000580

PATIENT
  Age: 23 Year
  Sex: Male
  Weight: 56 kg

DRUGS (8)
  1. ORKAMBI [Suspect]
     Active Substance: IVACAFTOR\LUMACAFTOR
     Indication: CYSTIC FIBROSIS
     Dosage: 2 DF, BID
     Route: 048
     Dates: start: 20160321, end: 20160408
  2. CREON [Concomitant]
     Active Substance: PANCRELIPASE AMYLASE\PANCRELIPASE LIPASE\PANCRELIPASE PROTEASE
  3. MOPRAL [Concomitant]
     Active Substance: OMEPRAZOLE SODIUM
  4. TOCO [Concomitant]
     Active Substance: UNSPECIFIED INGREDIENT
  5. SINGULAIR [Concomitant]
     Active Substance: MONTELUKAST SODIUM
  6. DELURSAN [Concomitant]
     Active Substance: URSODIOL
  7. UVEDOSE [Concomitant]
     Active Substance: CHOLECALCIFEROL
  8. XYZALL [Concomitant]
     Active Substance: LEVOCETIRIZINE DIHYDROCHLORIDE

REACTIONS (2)
  - Pyrexia [Recovering/Resolving]
  - Infective pulmonary exacerbation of cystic fibrosis [Recovering/Resolving]

NARRATIVE: CASE EVENT DATE: 20160408
